FAERS Safety Report 9322215 (Version 2)
Quarter: 2013Q3

REPORT INFORMATION
  Report Type: Spontaneous
  Country: US (occurrence: US)
  Receive Date: 20130531
  Receipt Date: 20130730
  Transmission Date: 20140515
  Serious: Yes (Death)
  Sender: FDA-Public Use
  Company Number: US-GLAXOSMITHKLINE-A1024547A

PATIENT
  Age: 62 Year
  Sex: Female

DRUGS (6)
  1. VOTRIENT [Suspect]
     Indication: RENAL CANCER
     Dosage: 4TAB PER DAY
     Route: 048
     Dates: start: 20130329
  2. TEMAZEPAM [Concomitant]
  3. OXYCODONE/ACETAMINOPHEN [Concomitant]
  4. FENTANYL PATCH [Concomitant]
  5. FOLIC ACID [Concomitant]
  6. ALBUTEROL NEBULIZER SOLUTION [Concomitant]

REACTIONS (2)
  - Disease progression [Fatal]
  - Drug ineffective [Unknown]
